FAERS Safety Report 10454307 (Version 3)
Quarter: 2014Q4

REPORT INFORMATION
  Report Type: Spontaneous
  Country: JP (occurrence: JP)
  Receive Date: 20140915
  Receipt Date: 20141121
  Transmission Date: 20150528
  Serious: Yes (Death)
  Sender: FDA-Public Use
  Company Number: JP-ROCHE-1461322

PATIENT
  Age: 65 Year
  Sex: Female
  Weight: 41 kg

DRUGS (2)
  1. KADCYLA [Suspect]
     Active Substance: ADO-TRASTUZUMAB EMTANSINE
     Dosage: MOST RECENT DOSE ON 27/AUG/2014
     Route: 041
     Dates: start: 20140625, end: 20140827
  2. KADCYLA [Suspect]
     Active Substance: ADO-TRASTUZUMAB EMTANSINE
     Indication: BREAST CANCER
     Dosage: MOST RECENT DOSE ON 04/JUN/2014
     Route: 041
     Dates: start: 20140604, end: 20140604

REACTIONS (6)
  - Anaemia [Unknown]
  - Interstitial lung disease [Fatal]
  - Respiratory failure [Fatal]
  - Oedema peripheral [Unknown]
  - Decreased appetite [Unknown]
  - Dehydration [Unknown]

NARRATIVE: CASE EVENT DATE: 201408
